FAERS Safety Report 21974560 (Version 1)
Quarter: 2023Q1

REPORT INFORMATION
  Report Type: Spontaneous
  Country: FR (occurrence: FR)
  Receive Date: 20230209
  Receipt Date: 20230209
  Transmission Date: 20230418
  Serious: Yes (Other)
  Sender: FDA-Public Use
  Company Number: None

PATIENT
  Age: 78 Year
  Sex: Male
  Weight: 69 kg

DRUGS (2)
  1. DOXYCYCLINE [Suspect]
     Active Substance: DOXYCYCLINE
     Indication: Osteitis
     Route: 065
     Dates: start: 20221125, end: 20230104
  2. CEPHALEXIN [Suspect]
     Active Substance: CEPHALEXIN
     Indication: Osteitis
     Route: 065
     Dates: start: 20221125, end: 20230104

REACTIONS (2)
  - Neutropenia [Recovering/Resolving]
  - Agranulocytosis [Recovered/Resolved]

NARRATIVE: CASE EVENT DATE: 20221228
